FAERS Safety Report 9450868 (Version 4)
Quarter: 2013Q3

REPORT INFORMATION
  Report Type: Spontaneous
  Country: CA (occurrence: CA)
  Receive Date: 20130809
  Receipt Date: 20130919
  Transmission Date: 20140515
  Serious: Yes (Other)
  Sender: FDA-Public Use
  Company Number: CA-ROCHE-1256202

PATIENT
  Age: 35 Year
  Sex: Female

DRUGS (8)
  1. OMALIZUMAB [Suspect]
     Indication: ASTHMA
     Route: 058
     Dates: start: 20130306, end: 20130725
  2. OMALIZUMAB [Suspect]
     Route: 058
     Dates: start: 20130725, end: 20130725
  3. OMALIZUMAB [Suspect]
     Route: 058
     Dates: start: 20130529
  4. OMALIZUMAB [Suspect]
     Dosage: TEST DOSE
     Route: 058
     Dates: start: 20130809, end: 20130809
  5. ZENHALE [Concomitant]
  6. NASONEX [Concomitant]
  7. TECTA [Concomitant]
  8. ASACOL [Concomitant]

REACTIONS (4)
  - Anaphylactic reaction [Recovered/Resolved]
  - Blood pressure increased [Unknown]
  - Headache [Unknown]
  - Throat tightness [Unknown]
